FAERS Safety Report 24927327 (Version 1)
Quarter: 2025Q1

REPORT INFORMATION
  Report Type: Spontaneous
  Country: US (occurrence: US)
  Receive Date: 20250205
  Receipt Date: 20250205
  Transmission Date: 20250408
  Serious: Yes (Other)
  Sender: MACLEODS
  Company Number: US-MACLEODS PHARMA-MAC2025051534

PATIENT

DRUGS (1)
  1. SEVELAMER [Suspect]
     Active Substance: SEVELAMER
     Indication: Product used for unknown indication
     Route: 065

REACTIONS (6)
  - Gastrointestinal injury [Unknown]
  - Crystal deposit intestine [Unknown]
  - Gastrointestinal ulcer [Unknown]
  - Colitis [Recovered/Resolved]
  - Gastrointestinal mucosa hyperaemia [Unknown]
  - Nodule [Unknown]
